FAERS Safety Report 24103613 (Version 2)
Quarter: 2024Q3

REPORT INFORMATION
  Report Type: Spontaneous
  Country: JP (occurrence: JP)
  Receive Date: 20240717
  Receipt Date: 20240809
  Transmission Date: 20241017
  Serious: Yes (Hospitalization, Other)
  Sender: GLAXOSMITHKLINE
  Company Number: JP-GLAXOSMITHKLINE-JP2024GSK085626

PATIENT

DRUGS (6)
  1. DAPRODUSTAT [Suspect]
     Active Substance: DAPRODUSTAT
     Indication: Nephrogenic anaemia
     Dosage: 2 MG, 1D
  2. ROXADUSTAT [Concomitant]
     Active Substance: ROXADUSTAT
     Indication: Nephrogenic anaemia
     Dosage: 50 MG 3 TIMES IN A WEEK
  3. ROXADUSTAT [Concomitant]
     Active Substance: ROXADUSTAT
     Dosage: STOPPED
  4. ROXADUSTAT [Concomitant]
     Active Substance: ROXADUSTAT
     Dosage: RESTARTED
  5. ROXADUSTAT [Concomitant]
     Active Substance: ROXADUSTAT
     Dosage: CHANGED TO DAPRODUSTAT
  6. SODIUM FERROUS CITRATE [Concomitant]
     Active Substance: SODIUM FERROUS CITRATE
     Indication: Blood iron decreased
     Dosage: 100 MG, 1D

REACTIONS (4)
  - Cerebral infarction [Recovered/Resolved]
  - Condition aggravated [Recovered/Resolved]
  - Atrial septal defect acquired [Recovered/Resolved]
  - Venous thrombosis limb [Recovered/Resolved]
